FAERS Safety Report 5103623-X (Version None)
Quarter: 2006Q3

REPORT INFORMATION
  Report Type: 
  Country: None (occurrence: None)
  Receive Date: 20060908
  Receipt Date: 20060826
  Transmission Date: 20061208
  Serious: Yes (Other)
  Sender: FDA-Public Use
  Company Number: 2006081318

PATIENT
  Age: 61 Year
  Sex: Female
  Weight: 56.6996 kg

DRUGS (7)
  1. VFEND [Suspect]
     Indication: ASPERGILLOSIS
     Dosage: 400 MG (200 MG, 2 IN 1 D), ORAL
     Route: 048
     Dates: start: 20060531
  2. ALPHA HYDROXY ACID (ALPHA HYDROXY ACID) [Suspect]
     Indication: DRUG USE FOR UNKNOWN INDICATION
     Dosage: TOPICAL
     Route: 061
  3. SPIRIVA [Concomitant]
  4. ADVAIR DISKUS 100/50 [Concomitant]
  5. DYAZIDE [Concomitant]
  6. VASOTEC [Concomitant]
  7. ZOCOR [Concomitant]

REACTIONS (6)
  - ANOREXIA [None]
  - CHROMATOPSIA [None]
  - DISORIENTATION [None]
  - PHOTOPSIA [None]
  - SKIN DISCOLOURATION [None]
  - WEIGHT DECREASED [None]
